FAERS Safety Report 18496632 (Version 1)
Quarter: 2020Q4

REPORT INFORMATION
  Report Type: Spontaneous
  Country: US (occurrence: US)
  Receive Date: 20201112
  Receipt Date: 20201112
  Transmission Date: 20210114
  Serious: No
  Sender: FDA-Public Use
  Company Number: US-009507513-2011USA007082

PATIENT

DRUGS (1)
  1. ZETIA [Suspect]
     Active Substance: EZETIMIBE
     Dosage: 10 MILLIGRAM, ONCE DAILY (QD)

REACTIONS (3)
  - No adverse event [Unknown]
  - Product dose omission issue [Unknown]
  - Circumstance or information capable of leading to medication error [Unknown]
